FAERS Safety Report 5428749-2 (Version None)
Quarter: 2007Q3

REPORT INFORMATION
  Report Type: 
  Country: None (occurrence: None)
  Receive Date: 20070827
  Receipt Date: 20070827
  Transmission Date: 20080115
  Serious: Yes (Hospitalization)
  Sender: FDA-Public Use
  Company Number: None

PATIENT
  Sex: Male
  Weight: 71.2147 kg

DRUGS (2)
  1. INTERFERON ALFA 2B [Suspect]
     Indication: MALIGNANT MELANOMA
     Dosage: 20 MILLION UNITS 3 X WEEK SUBQ
     Route: 058
     Dates: start: 20070706, end: 20070817
  2. ANTI-CTLA-4 [Suspect]
     Indication: MALIGNANT MELANOMA
     Dosage: 1275 MG 1X IV
     Route: 042
     Dates: start: 20070629

REACTIONS (4)
  - DEHYDRATION [None]
  - DIARRHOEA [None]
  - NAUSEA [None]
  - VOMITING [None]
